FAERS Safety Report 16709383 (Version 1)
Quarter: 2019Q3

REPORT INFORMATION
  Report Type: Spontaneous
  Country: ES (occurrence: ES)
  Receive Date: 20190816
  Receipt Date: 20190816
  Transmission Date: 20191004
  Serious: Yes (Life-Threatening, Hospitalization, Other)
  Sender: FDA-Public Use
  Company Number: ES-ACCORD-151286

PATIENT
  Age: 79 Year
  Sex: Female

DRUGS (2)
  1. ALLOPURINOL. [Suspect]
     Active Substance: ALLOPURINOL
     Indication: HYPERURICAEMIA
  2. CEFDITOREN/CEFDITOREN PIVOXIL [Concomitant]
     Indication: URINARY TRACT INFECTION

REACTIONS (2)
  - Transaminases increased [Unknown]
  - Drug reaction with eosinophilia and systemic symptoms [Recovered/Resolved]
